FAERS Safety Report 14028085 (Version 1)
Quarter: 2017Q3

REPORT INFORMATION
  Report Type: Spontaneous
  Country: US (occurrence: US)
  Receive Date: 20170929
  Receipt Date: 20170929
  Transmission Date: 20171128
  Serious: Yes (Disabling)
  Sender: FDA-Public Use
  Company Number: None

PATIENT
  Age: 57 Year
  Sex: Male
  Weight: 76.5 kg

DRUGS (10)
  1. LYRICA [Suspect]
     Active Substance: PREGABALIN
     Indication: NEUROPATHY PERIPHERAL
     Dosage: ?          QUANTITY:1 TABLET(S);?
     Route: 048
     Dates: start: 20170619, end: 20170903
  2. NATURE^S WAY BLOOD SUGAR [Concomitant]
  3. CLONAZEPAM. [Concomitant]
     Active Substance: CLONAZEPAM
  4. OXYCODONE [Concomitant]
     Active Substance: OXYCODONE
  5. COQ10 [Concomitant]
     Active Substance: UBIDECARENONE
  6. ELAVIL [Concomitant]
     Active Substance: AMITRIPTYLINE HYDROCHLORIDE
  7. DIOVAN [Suspect]
     Active Substance: VALSARTAN
  8. MAGNESIUM [Concomitant]
     Active Substance: MAGNESIUM
  9. LANTUS [Concomitant]
     Active Substance: INSULIN GLARGINE
  10. NOVOLOG [Concomitant]
     Active Substance: INSULIN ASPART

REACTIONS (6)
  - Confusional state [None]
  - Contusion [None]
  - Asthenia [None]
  - Depression [None]
  - Insomnia [None]
  - Fear [None]

NARRATIVE: CASE EVENT DATE: 20170903
